FAERS Safety Report 8260275-8 (Version None)
Quarter: 2012Q2

REPORT INFORMATION
  Report Type: 
  Country: None (occurrence: None)
  Receive Date: 20120404
  Receipt Date: 20111003
  Transmission Date: 20120825
  Serious: Yes (Other)
  Sender: FDA-Public Use
  Company Number: US-ROCHE-1002637

PATIENT

DRUGS (6)
  1. AVASTIN [Suspect]
     Indication: BREAST CANCER METASTATIC
     Dosage: CYCLE 1
     Route: 042
     Dates: start: 20090717
  2. HERCEPTIN [Suspect]
     Dosage: CYCLE 1
     Route: 042
  3. PACLITAXEL [Suspect]
     Route: 042
  4. CARBOPLATIN [Suspect]
     Indication: BREAST CANCER METASTATIC
     Route: 042
  5. PACLITAXEL [Suspect]
     Indication: BREAST CANCER METASTATIC
     Dosage: CYCLE 1
     Route: 042
     Dates: start: 20090717
  6. HERCEPTIN [Suspect]
     Indication: BREAST CANCER METASTATIC
     Dosage: CYCLE 1
     Route: 042
     Dates: start: 20090717

REACTIONS (1)
  - HYPOKALAEMIA [None]
